FAERS Safety Report 5501609-4 (Version None)
Quarter: 2007Q4

REPORT INFORMATION
  Report Type: 
  Country: None (occurrence: None)
  Receive Date: 20071030
  Receipt Date: 20071023
  Transmission Date: 20080405
  Serious: Yes (Death)
  Sender: FDA-Public Use
  Company Number: US-ELI_LILLY_AND_COMPANY-US200710006647

PATIENT
  Sex: Male

DRUGS (4)
  1. XIGRIS [Suspect]
     Indication: SEPSIS
     Dosage: 20 MG, UNK
     Route: 042
     Dates: start: 20070917, end: 20070919
  2. VANCOMYCIN HYDROCHLORIDE [Suspect]
     Dosage: 1 G, UNK
     Route: 042
     Dates: start: 20070917, end: 20070917
  3. DIFLUCAN [Concomitant]
     Dosage: 200 MG, UNK
     Route: 042
     Dates: start: 20070917, end: 20070918
  4. MAXIPIME [Concomitant]
     Dosage: 1 G, UNK
     Route: 042
     Dates: start: 20070917, end: 20070926

REACTIONS (2)
  - DEATH [None]
  - SKIN EXFOLIATION [None]
